FAERS Safety Report 10143664 (Version 1)
Quarter: 2014Q2

REPORT INFORMATION
  Report Type: Spontaneous
  Country: US (occurrence: US)
  Receive Date: 20140430
  Receipt Date: 20140430
  Transmission Date: 20141212
  Serious: No
  Sender: FDA-Public Use
  Company Number: US-PFIZER INC-2014116289

PATIENT
  Age: 69 Year
  Sex: Female
  Weight: 90.7 kg

DRUGS (2)
  1. PREMARIN [Suspect]
     Dosage: UNK
     Route: 067
     Dates: start: 2009
  2. HYDROCHLOROTHIAZIDE [Concomitant]
     Indication: HYPERTENSION
     Dosage: 0.25 MG, UNK

REACTIONS (2)
  - Intentional product misuse [Unknown]
  - Vulvovaginal burning sensation [Not Recovered/Not Resolved]
